FAERS Safety Report 13149251 (Version 6)
Quarter: 2019Q4

REPORT INFORMATION
  Report Type: Report from Study
  Country: US (occurrence: US)
  Receive Date: 20170125
  Receipt Date: 20191105
  Transmission Date: 20200122
  Serious: Yes (Other)
  Sender: FDA-Public Use
  Company Number: PHHY2016US032202

PATIENT
  Age: 53 Year
  Sex: Male

DRUGS (1)
  1. GILENYA [Suspect]
     Active Substance: FINGOLIMOD HYDROCHLORIDE
     Indication: MULTIPLE SCLEROSIS
     Dosage: QD
     Route: 048

REACTIONS (13)
  - Basal cell carcinoma [Recovered/Resolved]
  - Blood bilirubin increased [Recovered/Resolved]
  - Alanine aminotransferase increased [Recovered/Resolved]
  - Hypertension [Unknown]
  - Peroneal nerve palsy [Unknown]
  - Seborrhoeic keratosis [Unknown]
  - White blood cell count decreased [Unknown]
  - High density lipoprotein decreased [Unknown]
  - Lymphocyte count decreased [Unknown]
  - Cyst [Unknown]
  - Vitamin D deficiency [Unknown]
  - Depression [Unknown]
  - Anxiety [Unknown]

NARRATIVE: CASE EVENT DATE: 20150806
